FAERS Safety Report 8172230-7 (Version None)
Quarter: 2012Q1

REPORT INFORMATION
  Report Type: 
  Country: None (occurrence: None)
  Receive Date: 20120228
  Receipt Date: 20120221
  Transmission Date: 20120608
  Serious: Yes (Life-Threatening)
  Sender: FDA-Public Use
  Company Number: CN-BRISTOL-MYERS SQUIBB COMPANY-16408692

PATIENT
  Age: 68 Year
  Sex: Male
  Weight: 65 kg

DRUGS (3)
  1. CETUXIMAB [Suspect]
     Indication: NON-SMALL CELL LUNG CANCER
     Dosage: CETUXIMAB INTRAVENOUS INFUSION 23JUN10 29JUN10-15SEP10 (437 MG)
     Route: 041
     Dates: start: 20100623
  2. VINORELBINE TARTRATE [Suspect]
     Indication: NON-SMALL CELL LUNG CANCER
     Dosage: 43MG D1,D8,Q3W 20MG D1,D8,Q3W 29JUN10-8JUL10 21JUL-29JUL1:34MG 8D 21AUG-1SEP10:20MG 29D
     Route: 041
     Dates: start: 20100629
  3. CISPLATIN [Suspect]
     Indication: NON-SMALL CELL LUNG CANCER
     Dosage: 130MG Q3W 40MG D1-D3 Q3W 29JUN10:130 MG 21JUL10-104MG 11AUG10-1SEP10:40MG 21D
     Route: 042
     Dates: start: 20100629

REACTIONS (1)
  - BONE MARROW FAILURE [None]
